FAERS Safety Report 13637505 (Version 1)
Quarter: 2017Q2

REPORT INFORMATION
  Report Type: Spontaneous
  Country: IR (occurrence: IR)
  Receive Date: 20170609
  Receipt Date: 20170609
  Transmission Date: 20170830
  Serious: Yes (Other)
  Sender: FDA-Public Use
  Company Number: IR-PIRAMAL ENTERPRISES LTD-2017-PEL-000760

PATIENT
  Age: 6 Month
  Sex: Male
  Weight: 9 kg

DRUGS (5)
  1. SUFENTANIL [Concomitant]
     Active Substance: SUFENTANIL
     Indication: INDUCTION OF ANAESTHESIA
     Dosage: 0.2 ?G/KG, UNK
     Route: 065
  2. ATRACURIUM [Concomitant]
     Active Substance: ATRACURIUM
     Dosage: 0.5 MG/KG, UNK
     Route: 065
  3. FENTANYL. [Concomitant]
     Active Substance: FENTANYL
     Indication: MAINTENANCE OF ANAESTHESIA
     Dosage: UNK
     Route: 065
  4. THIOPENTAL [Concomitant]
     Active Substance: THIOPENTAL
     Indication: INDUCTION OF ANAESTHESIA
     Dosage: 6 MG/KG, UNK
     Route: 065
  5. ISOFLURANE. [Suspect]
     Active Substance: ISOFLURANE
     Indication: MAINTENANCE OF ANAESTHESIA
     Route: 065

REACTIONS (2)
  - Respiratory acidosis [Recovered/Resolved]
  - Hypercapnia [Recovered/Resolved]
